FAERS Safety Report 9021852 (Version 6)
Quarter: 2013Q3

REPORT INFORMATION
  Report Type: Spontaneous
  Country: JP (occurrence: JP)
  Receive Date: 20130118
  Receipt Date: 20130806
  Transmission Date: 20140515
  Serious: Yes (Hospitalization)
  Sender: FDA-Public Use
  Company Number: JP-JNJFOC-20130107005

PATIENT
  Age: 70 Year
  Sex: Female

DRUGS (4)
  1. SIMPONI [Suspect]
     Indication: RHEUMATOID ARTHRITIS
     Route: 058
     Dates: start: 20121001
  2. METHOTREXATE [Suspect]
     Indication: RHEUMATOID ARTHRITIS
     Route: 048
     Dates: start: 20060210
  3. LANSOPRAZOLE [Concomitant]
     Dosage: 1DF
     Route: 048
     Dates: start: 20120213
  4. TRAMACET [Concomitant]
     Route: 048
     Dates: start: 20120130

REACTIONS (1)
  - Pneumocystis jirovecii pneumonia [Recovered/Resolved]
